FAERS Safety Report 6111600-5 (Version None)
Quarter: 2009Q1

REPORT INFORMATION
  Report Type: 
  Country: None (occurrence: None)
  Receive Date: 20090311
  Receipt Date: 20090309
  Transmission Date: 20090719
  Serious: Yes (Hospitalization)
  Sender: FDA-Public Use
  Company Number: US-MERCK-0903USA01410

PATIENT
  Sex: Female

DRUGS (3)
  1. ZETIA [Suspect]
     Indication: HYPERCHOLESTEROLAEMIA
     Route: 048
  2. NEXIUM [Concomitant]
     Route: 065
  3. ACTONEL [Concomitant]
     Route: 065

REACTIONS (1)
  - CARDIAC NEOPLASM UNSPECIFIED [None]
